FAERS Safety Report 17415702 (Version 3)
Quarter: 2020Q2

REPORT INFORMATION
  Report Type: Spontaneous
  Country: US (occurrence: US)
  Receive Date: 20200213
  Receipt Date: 20200512
  Transmission Date: 20200713
  Serious: Yes (Other)
  Sender: FDA-Public Use
  Company Number: NVSC2020US035457

PATIENT
  Age: 85 Year
  Sex: Female

DRUGS (1)
  1. BEOVU [Suspect]
     Active Substance: BROLUCIZUMAB-DBLL
     Indication: AGE-RELATED MACULAR DEGENERATION
     Dosage: 6MG/0.05ML, QMO
     Route: 031
     Dates: start: 20191206, end: 20200114

REACTIONS (4)
  - Visual field defect [Unknown]
  - Vision blurred [Unknown]
  - Visual acuity reduced [Recovered/Resolved]
  - Eye inflammation [Unknown]

NARRATIVE: CASE EVENT DATE: 20200114
